FAERS Safety Report 9744793 (Version 1)
Quarter: 2013Q4

REPORT INFORMATION
  Report Type: Spontaneous
  Country: US (occurrence: US)
  Receive Date: 20131210
  Receipt Date: 20131210
  Transmission Date: 20140711
  Serious: Yes (Other)
  Sender: FDA-Public Use
  Company Number: US-ROCHE-1317287

PATIENT
  Age: 61 Year
  Sex: Female

DRUGS (1)
  1. ACTILYSE [Suspect]
     Indication: CEREBROVASCULAR ACCIDENT
     Route: 013

REACTIONS (3)
  - Cerebral infarction [Unknown]
  - Coma [Unknown]
  - Decerebrate posture [Unknown]
